FAERS Safety Report 10046916 (Version 2)
Quarter: 2014Q2

REPORT INFORMATION
  Report Type: Spontaneous
  Country: US (occurrence: US)
  Receive Date: 20140331
  Receipt Date: 20140430
  Transmission Date: 20141212
  Serious: No
  Sender: FDA-Public Use
  Company Number: US-BAYER-2014-046638

PATIENT
  Sex: Female

DRUGS (1)
  1. CLIMARA [Suspect]
     Indication: HORMONE REPLACEMENT THERAPY
     Dosage: 1 DF, OW
     Dates: start: 201402

REACTIONS (5)
  - Product adhesion issue [None]
  - Application site rash [Not Recovered/Not Resolved]
  - Application site pruritus [Not Recovered/Not Resolved]
  - Rash [Not Recovered/Not Resolved]
  - Product physical issue [None]
